FAERS Safety Report 5867376-X (Version None)
Quarter: 2008Q3

REPORT INFORMATION
  Report Type: 
  Country: None (occurrence: None)
  Receive Date: 20080902
  Receipt Date: 20080825
  Transmission Date: 20090109
  Serious: Yes (Hospitalization, Other)
  Sender: FDA-Public Use
  Company Number: PHHY2008DE14367

PATIENT
  Sex: Male

DRUGS (2)
  1. EXJADE [Suspect]
     Indication: HAEMOSIDEROSIS
     Dosage: 2 X 500 MG DAILY
     Route: 048
     Dates: start: 20061101, end: 20080601
  2. EXJADE [Suspect]
     Indication: MYELODYSPLASTIC SYNDROME

REACTIONS (1)
  - GASTROINTESTINAL HAEMORRHAGE [None]
